FAERS Safety Report 9635552 (Version 1)
Quarter: 2013Q4

REPORT INFORMATION
  Report Type: Spontaneous
  Country: US (occurrence: US)
  Receive Date: 20131021
  Receipt Date: 20131021
  Transmission Date: 20140711
  Serious: No
  Sender: FDA-Public Use
  Company Number: US-PURDUE-USA-2013-0103493

PATIENT
  Age: 53 Year
  Sex: Male

DRUGS (5)
  1. BUTRANS [Suspect]
     Indication: BACK PAIN
     Dosage: 5 MCG/HR, 1/WEEK
     Route: 062
  2. BUTRANS [Suspect]
     Dosage: 10 MCG/HR, 1/WEEK
     Route: 062
     Dates: end: 201305
  3. BUTRANS [Suspect]
     Dosage: 20 MCG/HR, 1/WEEK
     Route: 062
     Dates: start: 201305, end: 20130606
  4. PERCOCET                           /00867901/ [Concomitant]
     Indication: BACK PAIN
     Dosage: 1-2 TABLETS(5/325MG) EVERY 4 HOURS AS NEEDED
     Route: 048
  5. SOLUMEDROL [Concomitant]
     Indication: MULTIPLE SCLEROSIS
     Dosage: 1 G, MONTHLY
     Route: 042

REACTIONS (2)
  - Dyspnoea [Recovered/Resolved]
  - Drug ineffective [Not Recovered/Not Resolved]
